FAERS Safety Report 7834442-9 (Version None)
Quarter: 2011Q4

REPORT INFORMATION
  Report Type: 
  Country: None (occurrence: None)
  Receive Date: 20111024
  Receipt Date: 20111013
  Transmission Date: 20120403
  Serious: Yes (Other)
  Sender: FDA-Public Use
  Company Number: US-ELI_LILLY_AND_COMPANY-US201110004407

PATIENT
  Sex: Male

DRUGS (3)
  1. HUMALOG MIX 75/25 [Suspect]
     Indication: DIABETES MELLITUS
     Dosage: UNK, BID
     Dates: start: 20030101, end: 20110201
  2. HUMALOG [Suspect]
     Indication: DIABETES MELLITUS
     Dosage: 10 U, EACH MORNING
     Dates: start: 20090101
  3. HUMALOG [Suspect]
     Dosage: 14 U, EACH EVENING
     Dates: start: 20090101

REACTIONS (3)
  - RETINOPATHY [None]
  - RENAL TRANSPLANT [None]
  - EXPIRED DRUG ADMINISTERED [None]
